FAERS Safety Report 7056063 (Version 2)
Quarter: 2012Q4

REPORT INFORMATION
  Report Type: 
  Country: CA (occurrence: CA)
  Receive Date: 20090721
  Receipt Date: 20121101
  Transmission Date: 20130627
  Serious: Yes (Other)
  Sender: FDA-Public Use
  Company Number: PHHY2009CA28481

PATIENT
  Age: 42 Year
  Sex: Female

DRUGS (1)
  1. ZOMETA [Suspect]
     Indication: BREAST CANCER
     Dosage: 4 mg, Q 24 weeks
     Route: 042
     Dates: start: 20090205, end: 20090205

REACTIONS (5)
  - Abasia [Unknown]
  - Chest discomfort [Unknown]
  - Tension [Unknown]
  - Pain [Unknown]
  - Influenza like illness [Unknown]
